FAERS Safety Report 7269544-1 (Version None)
Quarter: 2011Q1

REPORT INFORMATION
  Report Type: 
  Country: None (occurrence: None)
  Receive Date: 20110125
  Receipt Date: 20110113
  Transmission Date: 20110831
  Serious: Yes (Other)
  Sender: FDA-Public Use
  Company Number: 021203

PATIENT
  Sex: Female

DRUGS (9)
  1. VITAMIN B12 /00056201/ [Concomitant]
  2. TYLENOL (CAPLET) [Concomitant]
  3. FERROUS SULFATE TAB [Concomitant]
  4. PREDNISONE [Concomitant]
  5. CIMZIA [Suspect]
     Indication: RHEUMATOID ARTHRITIS
     Dosage: (400 MG 1X/2 WEEKS SUBCUTANEOUS) (200 MG 1X/2 WEEKS SUBCUTANEOUS)
     Route: 058
     Dates: start: 20100528, end: 20100625
  6. CIMZIA [Suspect]
     Indication: RHEUMATOID ARTHRITIS
     Dosage: (400 MG 1X/2 WEEKS SUBCUTANEOUS) (200 MG 1X/2 WEEKS SUBCUTANEOUS)
     Route: 058
     Dates: start: 20100709
  7. BENADRYL [Concomitant]
  8. FOLIC ACID [Concomitant]
  9. METHOTREXATE [Concomitant]

REACTIONS (7)
  - HAEMOGLOBIN DECREASED [None]
  - CHEST PAIN [None]
  - ASTHMA [None]
  - HYPERSENSITIVITY [None]
  - LUNG DISORDER [None]
  - UTERINE LEIOMYOMA [None]
  - DYSPHAGIA [None]
